FAERS Safety Report 21799910 (Version 11)
Quarter: 2024Q1

REPORT INFORMATION
  Report Type: Report from Study
  Country: US (occurrence: US)
  Receive Date: 20221230
  Receipt Date: 20240311
  Transmission Date: 20240410
  Serious: Yes (Other)
  Sender: FDA-Public Use
  Company Number: US-ABBVIE-4254439

PATIENT
  Age: 58 Year
  Sex: Male

DRUGS (4)
  1. HUMIRA [Suspect]
     Active Substance: ADALIMUMAB
     Indication: Ankylosing spondylitis
     Dosage: FORM STRENGTH: 40 MILLIGRAM?START DATE AND END DATE- JUL 2022?CITRATE FREE
     Route: 058
     Dates: start: 20220708
  2. HUMIRA [Suspect]
     Active Substance: ADALIMUMAB
     Dosage: CITRATE FREE?FORM STRENGTH: 40 MILLIGRAM
     Route: 058
  3. HUMIRA [Suspect]
     Active Substance: ADALIMUMAB
     Dosage: FORM STRENGTH: 40 MILLIGRAM?CITRATE FREE
     Route: 058
  4. HUMIRA [Suspect]
     Active Substance: ADALIMUMAB
     Dosage: FORM STRENGTH: 40 MILLIGRAM?CITRATE FREE
     Route: 058

REACTIONS (16)
  - Joint effusion [Not Recovered/Not Resolved]
  - Tooth loss [Not Recovered/Not Resolved]
  - Nasopharyngitis [Unknown]
  - Musculoskeletal discomfort [Unknown]
  - Gingival disorder [Not Recovered/Not Resolved]
  - Ankylosing spondylitis [Not Recovered/Not Resolved]
  - Osteoarthritis [Unknown]
  - Pain in extremity [Recovering/Resolving]
  - Sinus disorder [Unknown]
  - Drug ineffective [Unknown]
  - Abdominal distension [Unknown]
  - Oropharyngeal pain [Unknown]
  - Spondylitis [Unknown]
  - Neck pain [Not Recovered/Not Resolved]
  - Arthritis [Unknown]
  - Rash papular [Unknown]

NARRATIVE: CASE EVENT DATE: 20221226
